FAERS Safety Report 5584236-2 (Version None)
Quarter: 2008Q1

REPORT INFORMATION
  Report Type: 
  Country: None (occurrence: None)
  Receive Date: 20080108
  Receipt Date: 20080102
  Transmission Date: 20080703
  Serious: Yes (Hospitalization)
  Sender: FDA-Public Use
  Company Number: A0700346A

PATIENT
  Age: 67 Year
  Sex: Male

DRUGS (4)
  1. LAMICTAL [Suspect]
     Indication: DRUG USE FOR UNKNOWN INDICATION
     Route: 048
  2. TEMODAR [Suspect]
     Indication: ASTROCYTOMA, LOW GRADE
     Dosage: 320MG CYCLIC
     Route: 048
     Dates: start: 20060925
  3. KEPPRA [Suspect]
     Indication: DRUG USE FOR UNKNOWN INDICATION
  4. RADIATION [Concomitant]
     Dates: start: 20060925

REACTIONS (5)
  - CONFUSIONAL STATE [None]
  - CONVULSION [None]
  - MALAISE [None]
  - PNEUMONIA ASPIRATION [None]
  - VOMITING [None]
